FAERS Safety Report 6411915-7 (Version None)
Quarter: 2009Q4

REPORT INFORMATION
  Report Type: 
  Country: None (occurrence: None)
  Receive Date: 20091023
  Receipt Date: 20091015
  Transmission Date: 20100525
  Serious: No
  Sender: FDA-Public Use
  Company Number: DE-AVENTIS-200911483DE

PATIENT
  Age: 36 Year
  Sex: Female

DRUGS (4)
  1. ARAVA [Suspect]
     Indication: RHEUMATOID ARTHRITIS
     Dosage: DOSE: NOT REPORTED
     Route: 048
     Dates: end: 20090101
  2. PREDNISOLONE [Concomitant]
     Indication: RHEUMATOID ARTHRITIS
     Route: 048
  3. L-THYROXIN [Concomitant]
     Indication: HYPOTHYROIDISM
     Route: 048
  4. CALCICAR [Concomitant]
     Indication: OSTEOPOROSIS PROPHYLAXIS
     Dosage: DOSE: D 3
     Route: 048

REACTIONS (1)
  - DRUG EXPOSURE DURING PREGNANCY [None]
